FAERS Safety Report 25098258 (Version 5)
Quarter: 2025Q3

REPORT INFORMATION
  Report Type: Report from Study
  Country: CA (occurrence: CA)
  Receive Date: 20250320
  Receipt Date: 20250825
  Transmission Date: 20251020
  Serious: Yes (Other)
  Sender: JOHNSON AND JOHNSON
  Company Number: CA-JNJFOC-20250151819

PATIENT
  Age: 15 Year
  Sex: Female
  Weight: 54.5 kg

DRUGS (12)
  1. REMICADE [Suspect]
     Active Substance: INFLIXIMAB
     Indication: Crohn^s disease
     Route: 041
     Dates: start: 20240808, end: 202504
  2. REMICADE [Suspect]
     Active Substance: INFLIXIMAB
     Route: 041
  3. REMICADE [Suspect]
     Active Substance: INFLIXIMAB
     Route: 041
  4. BIOTIN [Concomitant]
     Active Substance: BIOTIN
     Indication: Nutritional supplementation
  5. SERTRALINE [Concomitant]
     Active Substance: SERTRALINE HYDROCHLORIDE
     Indication: Anxiety
     Route: 048
  6. SERTRALINE [Concomitant]
     Active Substance: SERTRALINE HYDROCHLORIDE
     Indication: Depression
  7. ETHINYL ESTRADIOL\LEVONORGESTREL [Concomitant]
     Active Substance: ETHINYL ESTRADIOL\LEVONORGESTREL
     Indication: Contraception
  8. LOTEPREDNOL [Concomitant]
     Active Substance: LOTEPREDNOL
     Indication: Eye irritation
     Dates: start: 2024
  9. VITAMINS [Concomitant]
     Active Substance: VITAMINS
     Indication: Nutritional supplementation
  10. VITAMIN D NOS [Concomitant]
     Active Substance: CHOLECALCIFEROL\ERGOCALCIFEROL
     Indication: Nutritional supplementation
  11. FISH OIL [Concomitant]
     Active Substance: FISH OIL
     Indication: Nutritional supplementation
  12. DIPHENHYDRAMINE [Concomitant]
     Active Substance: DIPHENHYDRAMINE
     Indication: Skin reaction
     Dates: start: 2024

REACTIONS (8)
  - Pyoderma gangrenosum [Recovered/Resolved]
  - Dermatitis [Recovered/Resolved]
  - Skin infection [Recovered/Resolved]
  - Respiratory tract congestion [Recovered/Resolved]
  - Mineral supplementation [Recovered/Resolved]
  - Drug ineffective [Unknown]
  - Psoriasis [Not Recovered/Not Resolved]
  - Oedema [Recovered/Resolved]

NARRATIVE: CASE EVENT DATE: 20241001
